FAERS Safety Report 12954023 (Version 1)
Quarter: 2016Q4

REPORT INFORMATION
  Report Type: Report from Study
  Country: US (occurrence: US)
  Receive Date: 20161118
  Receipt Date: 20161118
  Transmission Date: 20170207
  Serious: Yes (Hospitalization, Other)
  Sender: FDA-Public Use
  Company Number: US-ACTELION-A-US2016-145054

PATIENT
  Age: 8 Month
  Sex: Female

DRUGS (9)
  1. MILRINONE [Concomitant]
     Active Substance: MILRINONE
     Dosage: 0.5 ?G/KG, PER MIN
  2. NITROUS OXIDE. [Concomitant]
     Active Substance: NITROUS OXIDE
  3. LASIX [Concomitant]
     Active Substance: FUROSEMIDE
  4. MORPHINE [Concomitant]
     Active Substance: MORPHINE
  5. BACTRIM [Concomitant]
     Active Substance: SULFAMETHOXAZOLE\TRIMETHOPRIM
  6. SILDENAFIL. [Concomitant]
     Active Substance: SILDENAFIL
     Dosage: 1.3 MG/KG, TID
  7. BUMEX [Concomitant]
     Active Substance: BUMETANIDE
     Dosage: 5 ?G/KG, UNK
  8. TRACLEER [Suspect]
     Active Substance: BOSENTAN
     Indication: PULMONARY ARTERIAL HYPERTENSION
     Dosage: 2 MG/KG, UNK
     Route: 048
     Dates: start: 20160914
  9. VERSED [Concomitant]
     Active Substance: MIDAZOLAM HYDROCHLORIDE

REACTIONS (11)
  - Alanine aminotransferase increased [Recovering/Resolving]
  - Acute respiratory failure [Recovering/Resolving]
  - Pyrexia [Recovering/Resolving]
  - Oedema [Recovering/Resolving]
  - Pseudomonas infection [Recovering/Resolving]
  - Aspartate aminotransferase increased [Recovering/Resolving]
  - Blood culture [Recovering/Resolving]
  - Tachycardia [Recovering/Resolving]
  - Liver function test increased [Recovering/Resolving]
  - Device related sepsis [Recovering/Resolving]
  - Right ventricular dysfunction [Recovering/Resolving]
